FAERS Safety Report 17822412 (Version 2)
Quarter: 2022Q1

REPORT INFORMATION
  Report Type: Spontaneous
  Country: CH (occurrence: CH)
  Receive Date: 20200526
  Receipt Date: 20220131
  Transmission Date: 20220423
  Serious: Yes (Other)
  Sender: FDA-Public Use
  Company Number: CH-SM-2020-12882

PATIENT
  Age: 72 Year
  Sex: Male

DRUGS (27)
  1. HYDROXYCHLOROQUINE [Suspect]
     Active Substance: HYDROXYCHLOROQUINE
     Dosage: 800 MILLIGRAM DAILY;
     Route: 048
     Dates: start: 20200326, end: 20200327
  2. HYDROXYCHLOROQUINE [Suspect]
     Active Substance: HYDROXYCHLOROQUINE
     Dosage: 400 MILLIGRAM DAILY;
     Route: 048
     Dates: start: 20200327, end: 20200331
  3. ATAZANAVIR [Suspect]
     Active Substance: ATAZANAVIR
     Dosage: 400 MILLIGRAM DAILY;
     Route: 048
     Dates: start: 20200326, end: 20200331
  4. METOCLOPRAMIDE [Suspect]
     Active Substance: METOCLOPRAMIDE
     Dosage: ROUTE OF ADMINISTRATION : INTRAVENOUS AND ORAL
     Route: 050
     Dates: start: 20200328, end: 20200331
  5. CEFTRIAXONE [Concomitant]
     Active Substance: CEFTRIAXONE
     Route: 042
     Dates: start: 20200327, end: 20200329
  6. CEFEPIME [Concomitant]
     Active Substance: CEFEPIME HYDROCHLORIDE
     Route: 042
     Dates: start: 20200329, end: 20200402
  7. ROCURONIUM [Concomitant]
     Active Substance: ROCURONIUM BROMIDE
     Route: 042
     Dates: start: 20200326, end: 20200327
  8. ROCURONIUM [Concomitant]
     Active Substance: ROCURONIUM BROMIDE
     Route: 042
     Dates: start: 20200330
  9. MIDAZOLAM [Concomitant]
     Active Substance: MIDAZOLAM
     Route: 042
     Dates: start: 20200326, end: 20200402
  10. PROPOFOL [Concomitant]
     Active Substance: PROPOFOL
     Route: 042
     Dates: start: 20200326, end: 20200327
  11. PROPOFOL [Concomitant]
     Active Substance: PROPOFOL
     Route: 042
     Dates: start: 20200402
  12. FENTANYL [Concomitant]
     Active Substance: FENTANYL
     Route: 042
     Dates: start: 20200326, end: 20200401
  13. NOREPINEPHRINE [Concomitant]
     Active Substance: NOREPINEPHRINE
     Route: 042
     Dates: start: 20200326, end: 20200402
  14. FUROSEMIDE [Concomitant]
     Active Substance: FUROSEMIDE
     Route: 042
     Dates: start: 20200327
  15. HYDROCHLOROTHIAZIDE [Concomitant]
     Active Substance: HYDROCHLOROTHIAZIDE
     Route: 048
     Dates: start: 20200328, end: 20200330
  16. PRAVASTATIN [Concomitant]
     Active Substance: PRAVASTATIN
     Dosage: 40 MILLIGRAM DAILY;
     Route: 048
     Dates: start: 20200326, end: 20200402
  17. ASPIRIN [Concomitant]
     Active Substance: ASPIRIN
     Dosage: 100 MILLIGRAM DAILY; ROUTE OF ADMINISTRATION: ORAL OR INTRAVENOUS
     Route: 050
     Dates: start: 20200327, end: 20200402
  18. METOPROLOL [Concomitant]
     Active Substance: METOPROLOL
     Dosage: 50 MILLIGRAM DAILY;
     Route: 048
     Dates: start: 20200326, end: 20200326
  19. TORSEMIDE [Concomitant]
     Active Substance: TORSEMIDE
     Route: 048
     Dates: start: 20200330, end: 20200402
  20. EZETIMIBE [Concomitant]
     Active Substance: EZETIMIBE
     Dosage: 10 MILLIGRAM DAILY;
     Route: 048
     Dates: start: 20200326, end: 20200326
  21. ALLOPURINOL [Concomitant]
     Active Substance: ALLOPURINOL
     Dosage: 300 MILLIGRAM DAILY;
     Route: 048
     Dates: start: 20200327, end: 20200402
  22. ACETAMINOPHEN [Concomitant]
     Active Substance: ACETAMINOPHEN
     Dosage: 500 MILLIGRAM DAILY;
     Route: 048
     Dates: start: 20200327, end: 20200402
  23. INSULIN NOS [Concomitant]
     Active Substance: INSULIN NOS
     Dates: start: 20200327, end: 20200327
  24. ENOXAPARIN SODIUM [Concomitant]
     Active Substance: ENOXAPARIN SODIUM
     Route: 058
     Dates: start: 20200327, end: 20200402
  25. DUPHALAC [Concomitant]
     Active Substance: LACTULOSE
     Dates: start: 20200328, end: 20200402
  26. phosphore Phoscap [Concomitant]
     Route: 048
     Dates: start: 20200328, end: 20200402
  27. Supradyne Energy [Concomitant]
     Route: 048
     Dates: start: 20200402, end: 20200402

REACTIONS (1)
  - Electrocardiogram QT prolonged [Recovered/Resolved]

NARRATIVE: CASE EVENT DATE: 20200302
